FAERS Safety Report 25844412 (Version 1)
Quarter: 2025Q3

REPORT INFORMATION
  Report Type: Spontaneous
  Country: US (occurrence: US)
  Receive Date: 20250925
  Receipt Date: 20250925
  Transmission Date: 20251020
  Serious: Yes (Hospitalization, Other)
  Sender: QILU PHARMACEUTICAL (HAINAN) CO., LTD.
  Company Number: US-QILU PHARMACEUTICAL (HAINAN) CO.  LTD.-QLH-000299-2025

PATIENT
  Age: 68 Year
  Sex: Male

DRUGS (2)
  1. IMATINIB [Suspect]
     Active Substance: IMATINIB
     Indication: Gastrointestinal stromal tumour
     Dosage: 400 MG PER DAY
     Route: 065
     Dates: end: 2024
  2. IMATINIB [Suspect]
     Active Substance: IMATINIB
     Indication: Gastrointestinal stromal tumour
     Dosage: 200 MG PER DAY (50% DOSE REDUCTION)
     Route: 065

REACTIONS (4)
  - Demyelinating polyneuropathy [Recovered/Resolved]
  - Myositis [Recovered/Resolved]
  - Generalised oedema [Unknown]
  - Off label use [Recovered/Resolved]
